FAERS Safety Report 4268673-4 (Version None)
Quarter: 2004Q1

REPORT INFORMATION
  Report Type: 
  Country: None (occurrence: None)
  Receive Date: 20040108
  Receipt Date: 20031219
  Transmission Date: 20041129
  Serious: No
  Sender: FDA-Public Use
  Company Number: 2004-111405-NL

PATIENT
  Age: 55 Year
  Sex: Male

DRUGS (7)
  1. MIRTAZAPINE [Suspect]
     Indication: SLEEP DISORDER THERAPY
     Dosage: 30 MG QD
     Route: 048
     Dates: start: 20031125
  2. FENTANYL [Suspect]
     Indication: ARTHRALGIA
     Dosage: 50 UG 4WEEKLY
     Route: 062
     Dates: start: 20031125
  3. ATENOLOL [Concomitant]
  4. NIFEDIPINE [Concomitant]
  5. VALSARTAN [Concomitant]
  6. ATORVASTATIN [Concomitant]
  7. ROFECOXIB [Concomitant]

REACTIONS (5)
  - ABNORMAL DREAMS [None]
  - LOSS OF CONSCIOUSNESS [None]
  - MEMORY IMPAIRMENT [None]
  - ROAD TRAFFIC ACCIDENT [None]
  - SOMNOLENCE [None]
